FAERS Safety Report 8413708-8 (Version None)
Quarter: 2012Q2

REPORT INFORMATION
  Report Type: 
  Country: None (occurrence: None)
  Receive Date: 20120605
  Receipt Date: 20120522
  Transmission Date: 20120825
  Serious: Yes (Other)
  Sender: FDA-Public Use
  Company Number: GB-CELGENEUS-167-20785-12052738

PATIENT

DRUGS (3)
  1. THALIDOMIDE [Suspect]
     Indication: CASTLEMAN'S DISEASE
     Dosage: 100 MILLIGRAM
     Route: 048
  2. THALIDOMIDE [Suspect]
     Dosage: 100 MILLIGRAM
     Route: 048
  3. RITUXIMAB [Suspect]
     Indication: CASTLEMAN'S DISEASE
     Route: 041

REACTIONS (3)
  - NEUROPATHY PERIPHERAL [None]
  - KAPOSI'S SARCOMA [None]
  - CONDITION AGGRAVATED [None]
